FAERS Safety Report 8329788-4 (Version None)
Quarter: 2012Q2

REPORT INFORMATION
  Report Type: 
  Country: None (occurrence: None)
  Receive Date: 20120502
  Receipt Date: 20100505
  Transmission Date: 20120825
  Serious: No
  Sender: FDA-Public Use
  Company Number: US-TEVA-2009011801

PATIENT
  Sex: Female
  Weight: 85.352 kg

DRUGS (3)
  1. NUVIGIL [Suspect]
     Indication: DEPRESSION
     Dosage: 150 MILLIGRAM;
     Route: 048
     Dates: start: 20100301
  2. NUVIGIL [Suspect]
     Indication: ASTHENIA
     Dosage: 250 MILLIGRAM;
     Route: 048
     Dates: start: 20090801
  3. ABILIFY [Suspect]

REACTIONS (1)
  - WEIGHT INCREASED [None]
